FAERS Safety Report 16978596 (Version 3)
Quarter: 2019Q4

REPORT INFORMATION
  Report Type: Spontaneous
  Country: JP (occurrence: JP)
  Receive Date: 20191031
  Receipt Date: 20191113
  Transmission Date: 20200122
  Serious: Yes (Other)
  Sender: FDA-Public Use
  Company Number: JP-TEVA-2019-JP-008031J

PATIENT
  Age: 71 Year
  Sex: Male

DRUGS (1)
  1. LANSOPRAZOLE OD TABLET 30MG ^TAKEDA TEVA^ [Suspect]
     Active Substance: LANSOPRAZOLE
     Indication: PRODUCT USED FOR UNKNOWN INDICATION
     Dosage: DOSAGE IS UNKNOWN
     Route: 048
     Dates: end: 20191027

REACTIONS (2)
  - Diarrhoea [Unknown]
  - Colitis microscopic [Not Recovered/Not Resolved]
